FAERS Safety Report 4524104-8 (Version None)
Quarter: 2004Q4

REPORT INFORMATION
  Report Type: 
  Country: None (occurrence: None)
  Receive Date: 20041119
  Receipt Date: 20040909
  Transmission Date: 20050328
  Serious: No
  Sender: FDA-Public Use
  Company Number: 208969

PATIENT
  Age: 62 Year
  Sex: Female

DRUGS (3)
  1. RAPTIVA [Suspect]
     Indication: PSORIASIS
     Dosage: 0.5 ML, 1/WEEK, SUBCUTANEOUS
     Route: 058
     Dates: start: 20040820
  2. TYLENOL ARTHRITIS (ACETAMINOPHEN) [Concomitant]
  3. TYLENOL SINUS (COLD AND  SINUS REMEDIES0 [Concomitant]

REACTIONS (1)
  - PSORIASIS [None]
